FAERS Safety Report 16568452 (Version 1)
Quarter: 2019Q3

REPORT INFORMATION
  Report Type: Report from Study
  Country: CN (occurrence: CN)
  Receive Date: 20190712
  Receipt Date: 20190712
  Transmission Date: 20191004
  Serious: Yes (Other)
  Sender: FDA-Public Use
  Company Number: CN-ELI_LILLY_AND_COMPANY-CN201907005573

PATIENT
  Age: 58 Year
  Sex: Female

DRUGS (7)
  1. 5 FU [Concomitant]
     Active Substance: FLUOROURACIL
     Indication: RECTAL CANCER METASTATIC
     Dosage: 0.5 (UNSPECIFIED UNITS)
     Route: 040
     Dates: start: 20160608
  2. 5 FU [Concomitant]
     Active Substance: FLUOROURACIL
     Dosage: 3.25 (UNSPECIFIED UNITS) FOR 48 HOURS
     Route: 042
     Dates: start: 20160608, end: 20161107
  3. CETUXIMAB. [Suspect]
     Active Substance: CETUXIMAB
     Dosage: 0.8 (UNSPECIFIED UNITS), 2/W
     Route: 065
     Dates: start: 20161121
  4. 5 FU [Concomitant]
     Active Substance: FLUOROURACIL
     Dosage: 3.5 (UNSPECIFIED UNITS) FOR 48 HOURS
     Route: 042
     Dates: start: 20161121
  5. OXALIPLATIN. [Concomitant]
     Active Substance: OXALIPLATIN
     Indication: RECTAL CANCER METASTATIC
     Dosage: 120 MG, UNK
     Dates: start: 20160608, end: 20161107
  6. CETUXIMAB. [Suspect]
     Active Substance: CETUXIMAB
     Indication: RECTAL CANCER METASTATIC
     Dosage: 0.7 (UNSPECIFIED UNITS), 2/W
     Route: 065
     Dates: start: 20160608, end: 20161107
  7. CALCIUM FOLINATE [Concomitant]
     Active Substance: LEUCOVORIN CALCIUM
     Indication: RECTAL CANCER METASTATIC
     Dosage: 0.6 (UNSPECIFIED UNITS)
     Dates: start: 20160608

REACTIONS (2)
  - Leukopenia [Recovered/Resolved]
  - Off label use [Unknown]
